FAERS Safety Report 9484493 (Version 1)
Quarter: 2013Q3

REPORT INFORMATION
  Report Type: Spontaneous
  Country: US (occurrence: US)
  Receive Date: 20130828
  Receipt Date: 20130828
  Transmission Date: 20140515
  Serious: No
  Sender: FDA-Public Use
  Company Number: US-ABBOTT-13P-163-1094419-00

PATIENT
  Age: 42 Year
  Sex: Male

DRUGS (3)
  1. ANDROGEL 1.62% [Suspect]
     Indication: BLOOD TESTOSTERONE DECREASED
     Dates: start: 20120619, end: 201305
  2. ANDROGEL 1.62% [Suspect]
     Dates: start: 20120308, end: 20120619
  3. ANDROGEL 1.62% [Suspect]
     Dates: start: 201305

REACTIONS (1)
  - Application site rash [Recovered/Resolved]
